FAERS Safety Report 9510939 (Version 3)
Quarter: 2013Q4

REPORT INFORMATION
  Report Type: Report from Study
  Country: US (occurrence: US)
  Receive Date: 20130910
  Receipt Date: 20131003
  Transmission Date: 20140711
  Serious: Yes (Hospitalization)
  Sender: FDA-Public Use
  Company Number: US-ROCHE-1232403

PATIENT
  Age: 62 Year
  Sex: Male

DRUGS (5)
  1. RITUXAN [Suspect]
     Indication: MULTIPLE SCLEROSIS
     Route: 065
     Dates: start: 201206
  2. TYSABRI [Concomitant]
     Indication: MULTIPLE SCLEROSIS
     Route: 065
     Dates: end: 201111
  3. BACLOFEN [Concomitant]
     Route: 048
  4. AMPYRA [Concomitant]
     Indication: MULTIPLE SCLEROSIS
     Route: 048
  5. MONTELUKAST [Concomitant]
     Indication: HYPERTENSION
     Route: 048

REACTIONS (7)
  - Asthenia [Not Recovered/Not Resolved]
  - White blood cell disorder [Not Recovered/Not Resolved]
  - Fall [Recovered/Resolved]
  - Ill-defined disorder [Not Recovered/Not Resolved]
  - Mobility decreased [Not Recovered/Not Resolved]
  - Fall [Not Recovered/Not Resolved]
  - Ill-defined disorder [Not Recovered/Not Resolved]
